FAERS Safety Report 12377338 (Version 6)
Quarter: 2016Q4

REPORT INFORMATION
  Report Type: Spontaneous
  Country: ES (occurrence: ES)
  Receive Date: 20160517
  Receipt Date: 20161209
  Transmission Date: 20170207
  Serious: Yes (Death, Hospitalization, Other)
  Sender: FDA-Public Use
  Company Number: ES-JNJFOC-20160511266

PATIENT
  Age: 83 Year
  Sex: Male

DRUGS (5)
  1. ELIGARD [Suspect]
     Active Substance: LEUPROLIDE ACETATE
     Indication: PROSTATE CANCER METASTATIC
     Route: 065
     Dates: start: 201601
  2. PREDNISONE. [Suspect]
     Active Substance: PREDNISONE
     Indication: PROSTATE CANCER METASTATIC
     Route: 065
     Dates: start: 201503
  3. ZYTIGA [Suspect]
     Active Substance: ABIRATERONE ACETATE
     Indication: PROSTATE CANCER METASTATIC
     Route: 048
     Dates: start: 20150306, end: 20160506
  4. TRIPTORELINE [Suspect]
     Active Substance: TRIPTORELIN
     Indication: PROSTATE CANCER METASTATIC
     Route: 065
     Dates: end: 201601
  5. FIRMAGON [Suspect]
     Active Substance: DEGARELIX ACETATE
     Indication: PROSTATE CANCER METASTATIC
     Route: 065
     Dates: start: 201604

REACTIONS (7)
  - Drug ineffective [Unknown]
  - Hypokalaemia [Recovering/Resolving]
  - Prostate cancer metastatic [Unknown]
  - Upper gastrointestinal haemorrhage [Fatal]
  - General physical health deterioration [Unknown]
  - Dehydration [Unknown]
  - Malnutrition [Unknown]

NARRATIVE: CASE EVENT DATE: 201512
